FAERS Safety Report 6512471-5 (Version None)
Quarter: 2009Q4

REPORT INFORMATION
  Report Type: 
  Country: None (occurrence: None)
  Receive Date: 20091222
  Receipt Date: 20091214
  Transmission Date: 20100525
  Serious: Yes (Hospitalization)
  Sender: FDA-Public Use
  Company Number: IE-ABBOTT-08P-229-0493448-00

PATIENT
  Weight: 48.6 kg

DRUGS (3)
  1. ZEMPLAR [Suspect]
     Indication: HYPERPARATHYROIDISM SECONDARY
     Route: 042
     Dates: start: 20060701, end: 20070301
  2. ZEMPLAR [Suspect]
     Dates: start: 20070401
  3. CINACALCET HYDROCHLORIDE [Concomitant]
     Indication: CALCIUM IONISED DECREASED
     Dates: start: 20051201

REACTIONS (2)
  - BLOOD CALCIUM INCREASED [None]
  - CONFUSIONAL STATE [None]
